FAERS Safety Report 22759526 (Version 2)
Quarter: 2024Q2

REPORT INFORMATION
  Report Type: Spontaneous
  Country: PT (occurrence: PT)
  Receive Date: 20230728
  Receipt Date: 20240530
  Transmission Date: 20240716
  Serious: Yes (Hospitalization, Other)
  Sender: FDA-Public Use
  Company Number: PT-UCBSA-2023037653

PATIENT
  Age: 6 Year
  Sex: Male

DRUGS (23)
  1. LEVETIRACETAM [Suspect]
     Active Substance: LEVETIRACETAM
     Indication: Febrile infection-related epilepsy syndrome
     Dosage: 30 MILLIGRAM/KILOGRAM, ONCE DAILY (QD)
  2. LEVETIRACETAM [Suspect]
     Active Substance: LEVETIRACETAM
     Indication: Off label use
  3. LACOSAMIDE [Suspect]
     Active Substance: LACOSAMIDE
     Indication: Febrile infection-related epilepsy syndrome
     Dosage: 5 MILLIGRAM/KILOGRAM, ONCE DAILY (QD)
  4. LACOSAMIDE [Suspect]
     Active Substance: LACOSAMIDE
     Indication: Off label use
  5. MIDAZOLAM [Suspect]
     Active Substance: MIDAZOLAM
     Indication: Febrile infection-related epilepsy syndrome
     Dosage: UNK
  6. MIDAZOLAM [Suspect]
     Active Substance: MIDAZOLAM
     Indication: Off label use
  7. VALPROIC ACID [Suspect]
     Active Substance: VALPROIC ACID
     Indication: Febrile infection-related epilepsy syndrome
     Dosage: 40 MILLIGRAM/KILOGRAM, ONCE DAILY (QD)
  8. PERAMPANEL [Suspect]
     Active Substance: PERAMPANEL
     Indication: Febrile infection-related epilepsy syndrome
     Dosage: 4 MILLIGRAM, ONCE DAILY (QD)
  9. PHENYTOIN [Suspect]
     Active Substance: PHENYTOIN
     Indication: Status epilepticus
     Dosage: 10 MILLIGRAM/KILOGRAM, ONCE DAILY (QD)
  10. KETAMINE [Suspect]
     Active Substance: KETAMINE
     Indication: Febrile infection-related epilepsy syndrome
     Dosage: UNK
  11. PROPOFOL [Suspect]
     Active Substance: PROPOFOL
     Indication: Febrile infection-related epilepsy syndrome
     Dosage: UNK
     Route: 040
  12. DIAZEPAM [Suspect]
     Active Substance: DIAZEPAM
     Indication: Febrile infection-related epilepsy syndrome
     Dosage: UNK
     Route: 042
  13. METHYLPREDNISOLONE [Concomitant]
     Active Substance: METHYLPREDNISOLONE
     Indication: Febrile infection-related epilepsy syndrome
     Dosage: 30 MILLIGRAM/KILOGRAM, ONCE DAILY (QD), FOR 5 DAYS, STARTING ON DAY
  14. HUMAN IMMUNOGLOBULIN G [Concomitant]
     Active Substance: HUMAN IMMUNOGLOBULIN G
     Indication: Febrile infection-related epilepsy syndrome
     Dosage: 2 GRAM PER KILOGRAM, DIVIDED BETWEEN DAYS 17 AND 18
  15. ANAKINRA [Concomitant]
     Active Substance: ANAKINRA
     Indication: Febrile infection-related epilepsy syndrome
     Dosage: 4 MILLIGRAM/KILOGRAM, ONCE DAILY (QD), STARTING ON DAY 17
     Route: 058
  16. PYRIDOXINE [Concomitant]
     Active Substance: PYRIDOXINE
     Indication: Febrile infection-related epilepsy syndrome
     Dosage: 50 MILLIGRAM, 2X/DAY (BID), STARTING ON DAY 17
     Route: 042
  17. CANNABIDIOL [Concomitant]
     Active Substance: CANNABIDIOL
     Indication: Febrile infection-related epilepsy syndrome
     Dosage: 20 MILLIGRAM/KILOGRAM, ONCE DAILY (QD)
  18. ACYCLOVIR [Concomitant]
     Active Substance: ACYCLOVIR
     Indication: Antibiotic therapy
     Dosage: UNK
     Route: 042
  19. CEFTRIAXONE [Concomitant]
     Active Substance: CEFTRIAXONE\CEFTRIAXONE SODIUM
     Indication: Antibiotic therapy
     Dosage: UNK
  20. CLINDAMYCIN [Concomitant]
     Active Substance: CLINDAMYCIN
     Indication: Antibiotic therapy
     Dosage: UNK
  21. CIPROFLOXACIN [Concomitant]
     Active Substance: CIPROFLOXACIN
     Indication: Antibiotic therapy
     Dosage: UNK
  22. THIOPENTAL [Concomitant]
     Active Substance: THIOPENTAL
     Indication: Febrile infection-related epilepsy syndrome
     Dosage: UNK, DAYS 14 TO 16
  23. KD [Concomitant]
     Indication: Febrile infection-related epilepsy syndrome
     Dosage: UNK, STARTING ON DAY 10

REACTIONS (3)
  - Status epilepticus [Unknown]
  - Multiple-drug resistance [Unknown]
  - Off label use [Unknown]
